FAERS Safety Report 4559594-8 (Version None)
Quarter: 2005Q1

REPORT INFORMATION
  Report Type: 
  Country: None (occurrence: None)
  Receive Date: 20050113
  Receipt Date: 20041019
  Transmission Date: 20050727
  Serious: Yes (Other)
  Sender: FDA-Public Use
  Company Number: 355054

PATIENT
  Age: 54 Year
  Sex: Male

DRUGS (2)
  1. FUZEON [Suspect]
     Dosage: SUBCUTANEOUS
     Route: 058
     Dates: start: 20031231, end: 20031231
  2. FUZEON [Suspect]
     Dosage: 90 MG 2 PER DAY SUBCUTANEOUS
     Route: 058
     Dates: start: 20030401

REACTIONS (5)
  - INJECTION SITE DISCOMFORT [None]
  - INJECTION SITE REACTION [None]
  - LIPODYSTROPHY ACQUIRED [None]
  - MEDICATION ERROR [None]
  - NO ADVERSE EFFECT [None]
